FAERS Safety Report 10503977 (Version 2)
Quarter: 2014Q4

REPORT INFORMATION
  Report Type: Spontaneous
  Country: US (occurrence: US)
  Receive Date: 20141008
  Receipt Date: 20141008
  Transmission Date: 20150528
  Serious: No
  Sender: FDA-Public Use
  Company Number: US-BEH-2013034584

PATIENT
  Sex: Male
  Weight: 14 kg

DRUGS (17)
  1. PRIVIGEN [Suspect]
     Active Substance: HUMAN IMMUNOGLOBULIN G
     Indication: IMMUNODEFICIENCY COMMON VARIABLE
     Dosage: 10 GM VIAL; 100 ML; RATE OF INFUSION PER MANUFACTURER^S GUIDELINES OVER 4 HOURS
     Route: 042
  2. HEPARIN [Concomitant]
     Active Substance: HEPARIN SODIUM
     Dosage: 100 UNITS/ML
  3. PRIVIGEN [Suspect]
     Active Substance: HUMAN IMMUNOGLOBULIN G
     Indication: DERMATITIS
     Dosage: 10 GM VIAL; 100 ML; RATE OF INFUSION PER MANUFACTURER^S GUIDELINES OVER 4 HOURS
     Route: 042
  4. FLONASE [Concomitant]
     Active Substance: FLUTICASONE PROPIONATE
  5. ADVAIR HFA [Concomitant]
     Active Substance: FLUTICASONE PROPIONATE\SALMETEROL XINAFOATE
     Dosage: 45-21 MCG
  6. PRIVIGEN [Suspect]
     Active Substance: HUMAN IMMUNOGLOBULIN G
     Indication: ASTHMA
     Route: 042
  7. DIPHENHYDRAMINE COUGH SYRUP [Concomitant]
  8. ALBUTEROL SULFATE INHALER [Concomitant]
  9. EPIPEN [Concomitant]
     Active Substance: EPINEPHRINE
  10. SINGULAIR [Concomitant]
     Active Substance: MONTELUKAST SODIUM
  11. ACETAMINOPHEN. [Concomitant]
     Active Substance: ACETAMINOPHEN
     Dosage: 160 MG/5 ML
  12. PRIVIGEN [Suspect]
     Active Substance: HUMAN IMMUNOGLOBULIN G
     Indication: HYPOGAMMAGLOBULINAEMIA
     Route: 042
  13. SODIUM CHLORIDE. [Concomitant]
     Active Substance: SODIUM CHLORIDE
  14. CHILD MULTIVITAMIN [Concomitant]
  15. ALBUTEROL SOLUTION [Concomitant]
  16. FLOVENT INHALER [Concomitant]
  17. LIDOCAINE PRILOCAINE [Concomitant]

REACTIONS (4)
  - Pyrexia [Recovered/Resolved]
  - Nasopharyngitis [Unknown]
  - Headache [Recovered/Resolved]
  - Rash [Unknown]
